FAERS Safety Report 23084046 (Version 4)
Quarter: 2025Q2

REPORT INFORMATION
  Report Type: Report from Study
  Country: CO (occurrence: CO)
  Receive Date: 20231019
  Receipt Date: 20250506
  Transmission Date: 20250717
  Serious: Yes (Other)
  Sender: NOVARTIS
  Company Number: CO-002147023-NVSC2023CO157063

PATIENT
  Sex: Female

DRUGS (4)
  1. KISQALI [Suspect]
     Active Substance: RIBOCICLIB SUCCINATE
     Indication: Hormone receptor positive HER2 negative breast cancer
     Dosage: 600 MG, QD
     Route: 048
     Dates: start: 20230523, end: 202503
  2. KISQALI [Suspect]
     Active Substance: RIBOCICLIB SUCCINATE
     Indication: Breast cancer metastatic
     Route: 048
  3. KISQALI [Suspect]
     Active Substance: RIBOCICLIB SUCCINATE
     Route: 048
  4. Balandof [Concomitant]
     Indication: Product used for unknown indication
     Dosage: 325 MG, EVERY 8 HOURS
     Route: 065

REACTIONS (9)
  - Kidney infection [Not Recovered/Not Resolved]
  - Malaise [Unknown]
  - Decreased immune responsiveness [Unknown]
  - Renal disorder [Unknown]
  - Drug intolerance [Unknown]
  - Pharmacophobia [Unknown]
  - Platelet count decreased [Unknown]
  - Bone pain [Unknown]
  - Arthralgia [Unknown]
